FAERS Safety Report 17159770 (Version 1)
Quarter: 2019Q4

REPORT INFORMATION
  Report Type: Spontaneous
  Country: ES (occurrence: ES)
  Receive Date: 20191216
  Receipt Date: 20191216
  Transmission Date: 20200122
  Serious: Yes (Other)
  Sender: FDA-Public Use
  Company Number: ES-MYLANLABS-2019M1122884

PATIENT
  Age: 75 Year
  Sex: Male

DRUGS (17)
  1. ROPINIROLE. [Concomitant]
     Active Substance: ROPINIROLE
     Indication: PARKINSON^S DISEASE
     Dosage: 16 MG, QD
     Route: 065
  2. AMANTADINE. [Concomitant]
     Active Substance: AMANTADINE HYDROCHLORIDE
     Indication: PARKINSON^S DISEASE
     Dosage: 40 MG, QD
     Route: 065
  3. AMLODIPINE [Concomitant]
     Active Substance: AMLODIPINE BESYLATE
     Indication: HYPERTENSION
     Dosage: UNK
     Route: 065
  4. MYCOPHENOLATE MOFETIL. [Suspect]
     Active Substance: MYCOPHENOLATE MOFETIL
     Indication: RENAL TRANSPLANT
     Dosage: 750 MG, QD
     Route: 065
  5. TACROLIMUS. [Suspect]
     Active Substance: TACROLIMUS
     Indication: RENAL TRANSPLANT
     Dosage: 5.5 MG, QD
     Route: 065
  6. CARBIDOPA. [Concomitant]
     Active Substance: CARBIDOPA
     Dosage: 100 UNK, UNK
     Route: 065
  7. ENTACAPONE. [Concomitant]
     Active Substance: ENTACAPONE
     Dosage: 800 MILLIGRAM, QD
     Route: 065
  8. LEVODOPA [Concomitant]
     Active Substance: LEVODOPA
     Indication: PARKINSON^S DISEASE
     Dosage: 400 UNK, UNK
     Route: 065
  9. LEVODOPA [Concomitant]
     Active Substance: LEVODOPA
     Dosage: 300 UNK, UNK
  10. CARBIDOPA. [Concomitant]
     Active Substance: CARBIDOPA
     Dosage: 75 UNK, UNK
     Route: 065
  11. LEVODOPA [Concomitant]
     Active Substance: LEVODOPA
     Dosage: 800 MILLIGRAM, QD
     Route: 065
  12. APOMORPHINE [Concomitant]
     Active Substance: APOMORPHINE
     Indication: PARKINSON^S DISEASE
     Dosage: 3-4 DOSES
     Route: 065
  13. ENTACAPONE. [Concomitant]
     Active Substance: ENTACAPONE
     Indication: PARKINSON^S DISEASE
     Dosage: 600 UNK, UNK
     Route: 065
  14. TACROLIMUS. [Suspect]
     Active Substance: TACROLIMUS
     Indication: IMMUNOSUPPRESSANT DRUG THERAPY
     Dosage: UNK
  15. CARBIDOPA. [Concomitant]
     Active Substance: CARBIDOPA
     Dosage: 200 MILLIGRAM, QD
     Route: 065
  16. LABETALOL [Concomitant]
     Active Substance: LABETALOL\LABETALOL HYDROCHLORIDE
     Indication: BLOOD PRESSURE MANAGEMENT
     Dosage: 100 MG, QD
     Route: 065
  17. MYCOPHENOLATE MOFETIL. [Suspect]
     Active Substance: MYCOPHENOLATE MOFETIL
     Indication: IMMUNOSUPPRESSANT DRUG THERAPY
     Dosage: UNK

REACTIONS (15)
  - Delusion of grandeur [Recovered/Resolved]
  - Persecutory delusion [Recovered/Resolved]
  - Headache [Recovered/Resolved]
  - Disturbance in attention [Recovered/Resolved]
  - Hypersomnia [Recovered/Resolved]
  - Disorientation [Recovered/Resolved]
  - Mania [Recovered/Resolved]
  - Neurotoxicity [Recovered/Resolved]
  - Irritability [Recovered/Resolved]
  - Agitation [Recovered/Resolved]
  - Confusional state [Recovered/Resolved]
  - Posterior reversible encephalopathy syndrome [Recovered/Resolved]
  - Aggression [Recovered/Resolved]
  - Mood altered [Recovered/Resolved]
  - Hallucination, visual [Recovered/Resolved]
